FAERS Safety Report 21028809 (Version 6)
Quarter: 2025Q1

REPORT INFORMATION
  Report Type: Report from Study
  Country: US (occurrence: US)
  Receive Date: 20220630
  Receipt Date: 20250312
  Transmission Date: 20250408
  Serious: Yes (Hospitalization, Other)
  Sender: TAKEDA
  Company Number: US-TAKEDA-2022TUS043393

PATIENT
  Age: 81 Year
  Sex: Female

DRUGS (4)
  1. LANADELUMAB [Suspect]
     Active Substance: LANADELUMAB
     Indication: Hereditary angioedema
     Dosage: 300 MILLIGRAM, MONTHLY
  2. FIRAZYR [Suspect]
     Active Substance: ICATIBANT ACETATE
     Indication: Hereditary angioedema
  3. FIRAZYR [Suspect]
     Active Substance: ICATIBANT ACETATE
  4. COVID-19 VACCINE NOS [Suspect]
     Active Substance: COVID-19 VACCINE
     Indication: Product used for unknown indication

REACTIONS (6)
  - Atrial fibrillation [Recovering/Resolving]
  - Parkinson^s disease [Not Recovered/Not Resolved]
  - Upper respiratory tract infection [Recovering/Resolving]
  - Ankle fracture [Recovering/Resolving]
  - COVID-19 [Recovering/Resolving]
  - Immunisation reaction [Not Recovered/Not Resolved]

NARRATIVE: CASE EVENT DATE: 20221201
